FAERS Safety Report 6148128-2 (Version None)
Quarter: 2009Q2

REPORT INFORMATION
  Report Type: 
  Country: None (occurrence: None)
  Receive Date: 20090402
  Receipt Date: 20090212
  Transmission Date: 20091009
  Serious: No
  Sender: FDA-Public Use
  Company Number: 1000004736

PATIENT
  Age: 78 Year
  Sex: Female

DRUGS (8)
  1. BYSTOLIC [Suspect]
     Indication: BLOOD PRESSURE INCREASED
     Dosage: 10 MG (10 MG, 1 IN 1 D), ORAL
     Route: 048
     Dates: start: 20080801
  2. DAILY MULTIVITAMIN (VITAMINS NOS) [Concomitant]
  3. GINKO [Concomitant]
  4. COENZYME Q10 [Concomitant]
  5. GARLIC [Concomitant]
  6. TYLENOL [Concomitant]
  7. ALEVE (CAPLET) [Concomitant]
  8. HERBALS NOS W/MINERALS NOS/VITAMINS NOS (VITAMINS NOS, MINERALS NOS, H [Concomitant]

REACTIONS (1)
  - PAIN [None]
